FAERS Safety Report 5688354-X (Version None)
Quarter: 2008Q1

REPORT INFORMATION
  Report Type: 
  Country: None (occurrence: None)
  Receive Date: 20080328
  Receipt Date: 20080328
  Transmission Date: 20080703
  Serious: Yes (Hospitalization)
  Sender: FDA-Public Use
  Company Number: None

PATIENT
  Age: 54 Year
  Sex: Male

DRUGS (2)
  1. ALIMTA [Suspect]
     Indication: ODYNOPHAGIA
     Dosage: 920 MG IV
     Route: 042
     Dates: start: 20080228, end: 20080317
  2. OXALIPLATIN [Suspect]
     Indication: DIARRHOEA
     Dosage: 156 MG IV
     Route: 042
     Dates: start: 20080228, end: 20080317

REACTIONS (3)
  - DIARRHOEA [None]
  - ODYNOPHAGIA [None]
  - ORAL INTAKE REDUCED [None]
